FAERS Safety Report 4418280-5 (Version None)
Quarter: 2004Q3

REPORT INFORMATION
  Report Type: 
  Country: None (occurrence: None)
  Receive Date: 20040809
  Receipt Date: 20040128
  Transmission Date: 20050211
  Serious: No
  Sender: FDA-Public Use
  Company Number: US-GLAXOSMITHKLINE-A0495371A

PATIENT
  Sex: Female

DRUGS (3)
  1. PAXIL CR [Suspect]
     Dosage: 12.5MG PER DAY
     Route: 048
  2. PRILOSEC [Concomitant]
  3. RESTORIL [Concomitant]

REACTIONS (5)
  - BLOOD PRESSURE INCREASED [None]
  - CONSTIPATION [None]
  - HEADACHE [None]
  - HEART RATE INCREASED [None]
  - TINNITUS [None]
